FAERS Safety Report 7650371-8 (Version None)
Quarter: 2011Q3

REPORT INFORMATION
  Report Type: 
  Country: None (occurrence: None)
  Receive Date: 20110802
  Receipt Date: 20110725
  Transmission Date: 20111222
  Serious: No
  Sender: FDA-Public Use
  Company Number: US-GENZYME-CERZ-1001887

PATIENT
  Sex: Female
  Weight: 100.68 kg

DRUGS (1)
  1. CEREZYME [Suspect]
     Indication: GAUCHER'S DISEASE

REACTIONS (2)
  - HYPERTENSION [None]
  - MALAISE [None]
